FAERS Safety Report 15350519 (Version 5)
Quarter: 2018Q4

REPORT INFORMATION
  Report Type: Spontaneous
  Country: IL (occurrence: IL)
  Receive Date: 20180905
  Receipt Date: 20181128
  Transmission Date: 20190204
  Serious: Yes (Other)
  Sender: FDA-Public Use
  Company Number: IL-TEVA-2018-IL-951103

PATIENT
  Age: 43 Year
  Sex: Male

DRUGS (2)
  1. RESLIZUMAB [Suspect]
     Active Substance: RESLIZUMAB
     Dosage: THE PATIENT RECEIVES 200 MG OF RESLIZUMAB, HE RECEIVED INFUSION NUMBER 5.
     Route: 065
  2. PREDNISONE 20 MG [Concomitant]
     Active Substance: PREDNISONE
     Indication: ASTHMA
     Route: 065

REACTIONS (7)
  - Acne [Unknown]
  - Fall [Unknown]
  - Pneumonia [Recovered/Resolved]
  - Pyrexia [Recovered/Resolved]
  - Rib fracture [Unknown]
  - Hyperhidrosis [Unknown]
  - Nasopharyngitis [Recovered/Resolved]
